FAERS Safety Report 4883404-2 (Version None)
Quarter: 2006Q1

REPORT INFORMATION
  Report Type: 
  Country: None (occurrence: None)
  Receive Date: 20060113
  Receipt Date: 20060105
  Transmission Date: 20060701
  Serious: Yes (Other)
  Sender: FDA-Public Use
  Company Number: 2005165521

PATIENT
  Age: 82 Year
  Sex: Male
  Weight: 85 kg

DRUGS (6)
  1. AMLODIPINE [Suspect]
     Indication: HYPERTENSION
     Dosage: 10 MG (10 MG, 1 IN 1 D), ORAL
     Route: 048
     Dates: start: 20050513, end: 20051207
  2. LASILIX PROLONGED RELEASE (FUROSEMIDE) [Concomitant]
  3. ALDACTONE [Concomitant]
  4. ALLOPURINOL 300 (ALLOPURINOL) [Concomitant]
  5. POTASSIUM CHLORIDE [Concomitant]
  6. SERETIDE 500 (FLUTICASONE PROPIONATE, SALMETEROL XINAFOATE) [Concomitant]

REACTIONS (2)
  - GAMMA-GLUTAMYLTRANSFERASE INCREASED [None]
  - PAIN IN EXTREMITY [None]
